FAERS Safety Report 17658022 (Version 1)
Quarter: 2020Q2

REPORT INFORMATION
  Report Type: Spontaneous
  Country: RU (occurrence: RU)
  Receive Date: 20200411
  Receipt Date: 20200411
  Transmission Date: 20200713
  Serious: Yes (Hospitalization)
  Sender: FDA-Public Use
  Company Number: NVSC2020RU097148

PATIENT
  Age: 49 Year
  Sex: Male
  Weight: 72 kg

DRUGS (3)
  1. POLYDEXA WITH PHENYLEPHRINE [Concomitant]
     Indication: OTITIS MEDIA ACUTE
     Dosage: UNK
     Route: 065
     Dates: start: 20200324
  2. AMOXICILLIN SANDOZ [Suspect]
     Active Substance: AMOXICILLIN
     Indication: OTITIS MEDIA ACUTE
     Dosage: 875/175
     Route: 048
     Dates: start: 20200324, end: 20200325
  3. NORMAX [Concomitant]
     Indication: OTITIS MEDIA ACUTE
     Dosage: UNK
     Route: 014
     Dates: start: 20200324

REACTIONS (3)
  - Rash [Not Recovered/Not Resolved]
  - Pruritus [Not Recovered/Not Resolved]
  - Asthenia [Not Recovered/Not Resolved]

NARRATIVE: CASE EVENT DATE: 20200325
